FAERS Safety Report 5593488-4 (Version None)
Quarter: 2008Q1

REPORT INFORMATION
  Report Type: 
  Country: None (occurrence: None)
  Receive Date: 20080116
  Receipt Date: 20080111
  Transmission Date: 20080703
  Serious: Yes (Hospitalization)
  Sender: FDA-Public Use
  Company Number: AU-BRISTOL-MYERS SQUIBB COMPANY-13960257

PATIENT
  Age: 56 Year
  Sex: Male

DRUGS (4)
  1. ABATACEPT [Suspect]
     Indication: CROHN'S DISEASE
     Dosage: 01AUG07-26SEP07
     Route: 042
     Dates: start: 20071022, end: 20071022
  2. METHOTREXATE [Concomitant]
     Route: 030
     Dates: start: 20050101
  3. PREDNISOLONE [Concomitant]
     Route: 048
     Dates: start: 20070601
  4. MEBARAL [Concomitant]
     Route: 048
     Dates: start: 20020101

REACTIONS (1)
  - VOMITING [None]
